FAERS Safety Report 4414728-0 (Version None)
Quarter: 2004Q3

REPORT INFORMATION
  Report Type: 
  Country: None (occurrence: None)
  Receive Date: 20040804
  Receipt Date: 20030724
  Transmission Date: 20050211
  Serious: No
  Sender: FDA-Public Use
  Company Number: US-BRISTOL-MYERS SQUIBB COMPANY-12334355

PATIENT
  Age: 72 Year
  Sex: Male
  Weight: 84 kg

DRUGS (3)
  1. GLUCOVANCE [Suspect]
     Indication: DIABETES MELLITUS
     Route: 048
     Dates: start: 20030401
  2. ALLOPURINOL [Concomitant]
  3. PROTONIX [Concomitant]

REACTIONS (4)
  - ABDOMINAL PAIN UPPER [None]
  - BLOOD GLUCOSE DECREASED [None]
  - BLOOD GLUCOSE INCREASED [None]
  - INFECTION [None]
